FAERS Safety Report 9172938 (Version 1)
Quarter: 2013Q1

REPORT INFORMATION
  Report Type: Spontaneous
  Country: US (occurrence: US)
  Receive Date: 20130320
  Receipt Date: 20130320
  Transmission Date: 20140127
  Serious: Yes (Other)
  Sender: FDA-Public Use
  Company Number: US-AMGEN-USASP2013018384

PATIENT
  Age: 72 Year
  Sex: Female

DRUGS (2)
  1. NEULASTA [Suspect]
     Indication: NEUTROPENIA
     Dosage: UNK
     Dates: start: 20130302
  2. CHEMOTHERAPEUTICS [Concomitant]
     Indication: SARCOMA UTERUS

REACTIONS (4)
  - Haemoglobin abnormal [Recovering/Resolving]
  - Haematocrit abnormal [Recovering/Resolving]
  - White blood cell disorder [Unknown]
  - Platelet count abnormal [Unknown]
